FAERS Safety Report 8762010 (Version 1)
Quarter: 2012Q4

REPORT INFORMATION
  Report Type: 
  Country: US (occurrence: US)
  Receive Date: 20120830
  Receipt Date: 20120830
  Transmission Date: 20130627
  Serious: No
  Sender: FDA-Public Use
  Company Number: US-PFIZER INC-2012208870

PATIENT
  Age: 68 Year
  Sex: Female
  Weight: 54.42 kg

DRUGS (2)
  1. CHANTIX [Suspect]
     Indication: SMOKING CESSATION THERAPY
     Dosage: 0.5 mg, 1x/day
     Route: 048
     Dates: start: 201208, end: 201208
  2. CHANTIX [Suspect]
     Dosage: 0.5 mg, 2x/day
     Dates: start: 201208, end: 201208

REACTIONS (2)
  - Lip swelling [Recovered/Resolved]
  - Face oedema [Recovered/Resolved]
